FAERS Safety Report 12084770 (Version 16)
Quarter: 2018Q2

REPORT INFORMATION
  Report Type: Report from Study
  Country: FR (occurrence: FR)
  Receive Date: 20160217
  Receipt Date: 20180620
  Transmission Date: 20180711
  Serious: Yes (Death, Life-Threatening, Hospitalization, Disabling, Other)
  Sender: FDA-Public Use
  Company Number: FR-INCYTE CORPORATION-2015IN006748

PATIENT

DRUGS (6)
  1. JAKAVI [Suspect]
     Active Substance: RUXOLITINIB
     Dosage: 5 MG, QD
     Route: 048
     Dates: start: 20140728, end: 20140828
  2. JAKAVI [Suspect]
     Active Substance: RUXOLITINIB
     Dosage: 5 MG, QD
     Route: 048
     Dates: start: 20140902, end: 20151202
  3. JAKAVI [Suspect]
     Active Substance: RUXOLITINIB
     Dosage: 5 MG, BID
     Route: 048
     Dates: start: 20160503, end: 201606
  4. JAKAVI [Suspect]
     Active Substance: RUXOLITINIB
     Dosage: 5 MG, BID
     Route: 048
     Dates: start: 20140616, end: 20140727
  5. PREVISCAN (FLUINDIONE) [Concomitant]
     Active Substance: FLUINDIONE
     Indication: THROMBOSIS PROPHYLAXIS
     Dosage: UNK
     Route: 065
     Dates: end: 201512
  6. JAKAVI [Suspect]
     Active Substance: RUXOLITINIB
     Indication: MYELOFIBROSIS
     Dosage: 5 MG, BID
     Route: 048
     Dates: start: 20130604, end: 20140615

REACTIONS (42)
  - Myelofibrosis [Fatal]
  - Malnutrition [Not Recovered/Not Resolved]
  - Diarrhoea [Recovered/Resolved]
  - Haemorrhage [Unknown]
  - Wheezing [Unknown]
  - Diarrhoea [Recovered/Resolved]
  - Back pain [Not Recovered/Not Resolved]
  - International normalised ratio increased [Unknown]
  - Infectious colitis [Recovered/Resolved]
  - Decubitus ulcer [Recovering/Resolving]
  - Oral pain [Not Recovered/Not Resolved]
  - Second primary malignancy [Recovered/Resolved]
  - Candida infection [Unknown]
  - Pyrexia [Unknown]
  - Stomatitis [Recovered/Resolved]
  - Anaemia [Not Recovered/Not Resolved]
  - Cellulitis [Recovered/Resolved]
  - Neutropenia [Unknown]
  - Myelofibrosis [Unknown]
  - Anxiety [Not Recovered/Not Resolved]
  - Breath sounds abnormal [Unknown]
  - Campylobacter infection [Unknown]
  - Geotrichum infection [Unknown]
  - Lymphocyte count decreased [Unknown]
  - Bronchitis [Not Recovered/Not Resolved]
  - Subdural haematoma [Recovering/Resolving]
  - Asthenia [Unknown]
  - Basal cell carcinoma [Recovered/Resolved]
  - Fusarium infection [Unknown]
  - Pneumonia [Recovered/Resolved]
  - Anal fissure [Unknown]
  - Productive cough [Unknown]
  - General physical health deterioration [Not Recovered/Not Resolved]
  - Abdominal pain [Not Recovered/Not Resolved]
  - Rales [Unknown]
  - Headache [Unknown]
  - Pain [Recovered/Resolved]
  - Cardiomegaly [Unknown]
  - Febrile neutropenia [Recovered/Resolved]
  - Activated partial thromboplastin time prolonged [Unknown]
  - Thrombocytopenia [Unknown]
  - Cough [Unknown]

NARRATIVE: CASE EVENT DATE: 201401
